FAERS Safety Report 18614980 (Version 10)
Quarter: 2025Q2

REPORT INFORMATION
  Report Type: Report from Study
  Country: US (occurrence: US)
  Receive Date: 20201214
  Receipt Date: 20250411
  Transmission Date: 20250717
  Serious: Yes (Other)
  Sender: TAKEDA
  Company Number: US-TAKEDA-2020TUS056352

PATIENT
  Sex: Female
  Weight: 87 kg

DRUGS (39)
  1. HUMAN IMMUNOGLOBULIN G [Suspect]
     Active Substance: HUMAN IMMUNOGLOBULIN G
     Indication: Immunodeficiency common variable
     Dosage: 16 GRAM, 1/WEEK
     Dates: start: 20201110
  2. HUMAN IMMUNOGLOBULIN G [Suspect]
     Active Substance: HUMAN IMMUNOGLOBULIN G
     Dosage: 16 GRAM, 1/WEEK
  3. HUMAN IMMUNOGLOBULIN G [Suspect]
     Active Substance: HUMAN IMMUNOGLOBULIN G
     Dosage: 20 MILLIGRAM, Q2WEEKS
  4. ADVAIR HFA [Concomitant]
     Active Substance: FLUTICASONE PROPIONATE\SALMETEROL XINAFOATE
  5. ACETAMINOPHEN [Concomitant]
     Active Substance: ACETAMINOPHEN
  6. DIPHENHYDRAMINE [Concomitant]
     Active Substance: DIPHENHYDRAMINE
  7. EPINEPHRINE [Concomitant]
     Active Substance: EPINEPHRINE
  8. Lmx [Concomitant]
  9. ONDANSETRON [Concomitant]
     Active Substance: ONDANSETRON
  10. JANUMET [Concomitant]
     Active Substance: METFORMIN HYDROCHLORIDE\SITAGLIPTIN PHOSPHATE
  11. ZYRTEC [Concomitant]
     Active Substance: CETIRIZINE HYDROCHLORIDE
  12. LYRICA [Concomitant]
     Active Substance: PREGABALIN
  13. LIPITOR [Concomitant]
     Active Substance: ATORVASTATIN CALCIUM
  14. SYNTHROID [Concomitant]
     Active Substance: LEVOTHYROXINE SODIUM
  15. PROVENTIL [Concomitant]
     Active Substance: ALBUTEROL
  16. LAMICTAL [Concomitant]
     Active Substance: LAMOTRIGINE
  17. NEXIUM [Concomitant]
     Active Substance: ESOMEPRAZOLE MAGNESIUM
  18. CHLORPROMAZINE [Concomitant]
     Active Substance: CHLORPROMAZINE
  19. HUMULIN R [Concomitant]
     Active Substance: INSULIN HUMAN
  20. BENADRYL [Concomitant]
     Active Substance: DIPHENHYDRAMINE HYDROCHLORIDE
  21. HIZENTRA [Concomitant]
     Active Substance: HUMAN IMMUNOGLOBULIN G
  22. LIDOCAINE [Concomitant]
     Active Substance: LIDOCAINE
  23. Estroven complete multi symptom menopause relief [Concomitant]
  24. TIZANIDINE [Concomitant]
     Active Substance: TIZANIDINE
  25. MAGNESIUM [Concomitant]
     Active Substance: MAGNESIUM
  26. JARDIANCE [Concomitant]
     Active Substance: EMPAGLIFLOZIN
  27. PRAVASTATIN SODIUM [Concomitant]
     Active Substance: PRAVASTATIN SODIUM
  28. POTASSIUM [Concomitant]
     Active Substance: POTASSIUM
  29. CLOPIDOGREL [Concomitant]
     Active Substance: CLOPIDOGREL BISULFATE
  30. ROPINIROLE HYDROCHLORIDE [Concomitant]
     Active Substance: ROPINIROLE HYDROCHLORIDE
  31. NURTEC ODT [Concomitant]
     Active Substance: RIMEGEPANT SULFATE
  32. METOPROLOL SUCCINATE [Concomitant]
     Active Substance: METOPROLOL SUCCINATE
  33. MELATONIN [Concomitant]
     Active Substance: MELATONIN
  34. OTEZLA [Concomitant]
     Active Substance: APREMILAST
  35. BREO ELLIPTA [Concomitant]
     Active Substance: FLUTICASONE FUROATE\VILANTEROL TRIFENATATE
  36. ASPIRIN [Concomitant]
     Active Substance: ASPIRIN
  37. TIZANIDINE HYDROCHLORIDE [Concomitant]
     Active Substance: TIZANIDINE HYDROCHLORIDE
  38. DIPHENHYDRAMINE HYDROCHLORIDE [Concomitant]
     Active Substance: DIPHENHYDRAMINE HYDROCHLORIDE
  39. ONDANSETRON HYDROCHLORIDE [Concomitant]
     Active Substance: ONDANSETRON HYDROCHLORIDE

REACTIONS (14)
  - Splenic rupture [Unknown]
  - Post procedural complication [Unknown]
  - Product dose omission issue [Unknown]
  - Weight fluctuation [Unknown]
  - Incorrect dose administered [Unknown]
  - Device infusion issue [Unknown]
  - Tooth abscess [Unknown]
  - Haemorrhage [Unknown]
  - Viral infection [Unknown]
  - Illness [Unknown]
  - Product distribution issue [Unknown]
  - Infusion site bruising [Unknown]
  - Infusion site swelling [Unknown]
  - Nausea [Unknown]
